FAERS Safety Report 13929714 (Version 1)
Quarter: 2017Q3

REPORT INFORMATION
  Report Type: Spontaneous
  Country: US (occurrence: US)
  Receive Date: 20170901
  Receipt Date: 20170901
  Transmission Date: 20171127
  Serious: Yes (Hospitalization, Other)
  Sender: FDA-Public Use
  Company Number: US-DRREDDYS-USA/USA/17/0091493

PATIENT
  Age: 54 Year
  Sex: Female

DRUGS (1)
  1. DOCETAXEL. [Suspect]
     Active Substance: DOCETAXEL
     Indication: BREAST CANCER
     Route: 065

REACTIONS (8)
  - Malaise [Unknown]
  - Tachycardia [Recovered/Resolved]
  - Nausea [Unknown]
  - Mouth ulceration [Unknown]
  - Hypophagia [Unknown]
  - Mucosal inflammation [Unknown]
  - Dry mouth [Unknown]
  - Febrile neutropenia [Recovered/Resolved]
